FAERS Safety Report 25026882 (Version 1)
Quarter: 2025Q1

REPORT INFORMATION
  Report Type: Spontaneous
  Country: US (occurrence: US)
  Receive Date: 20250301
  Receipt Date: 20250301
  Transmission Date: 20250408
  Serious: No
  Sender: SANOFI AVENTIS
  Company Number: US-SA-2025SA055749

PATIENT
  Age: 41 Year
  Sex: Male

DRUGS (10)
  1. DUPIXENT [Suspect]
     Active Substance: DUPILUMAB
     Indication: Dermatitis atopic
     Dosage: 300MG EVERY TWO WEEKS
     Route: 058
     Dates: start: 20220324
  2. AZITHROMYCIN [Concomitant]
     Active Substance: AZITHROMYCIN
  3. BUSPIRONE [Concomitant]
     Active Substance: BUSPIRONE HYDROCHLORIDE
  4. CLOBETASOL [Concomitant]
     Active Substance: CLOBETASOL
  5. FLUVOXAMINE [Concomitant]
     Active Substance: FLUVOXAMINE
  6. PIMECROLIMUS [Concomitant]
     Active Substance: PIMECROLIMUS
  7. PREDNISONE [Concomitant]
     Active Substance: PREDNISONE
  8. PREDNISONE [Concomitant]
     Active Substance: PREDNISONE
  9. TADALAFIL [Concomitant]
     Active Substance: TADALAFIL
  10. TADALAFIL [Concomitant]
     Active Substance: TADALAFIL

REACTIONS (2)
  - Drug ineffective [Unknown]
  - Product dose omission in error [Unknown]
